FAERS Safety Report 5242325-6 (Version None)
Quarter: 2007Q1

REPORT INFORMATION
  Report Type: 
  Country: None (occurrence: None)
  Receive Date: 20070221
  Receipt Date: 20070219
  Transmission Date: 20070707
  Serious: Yes (Disabling)
  Sender: FDA-Public Use
  Company Number: AUWYE720319FEB07

PATIENT
  Sex: Male

DRUGS (2)
  1. EFFEXOR XR [Suspect]
     Indication: DEPRESSION
     Route: 048
     Dates: start: 20070214
  2. EFFEXOR XR [Suspect]
     Indication: ANXIETY

REACTIONS (3)
  - CONDITION AGGRAVATED [None]
  - FATIGUE [None]
  - FEELING ABNORMAL [None]
